FAERS Safety Report 8604506-0 (Version None)
Quarter: 2012Q2

REPORT INFORMATION
  Report Type: 
  Country: None (occurrence: None)
  Receive Date: 20120402
  Receipt Date: 20120402
  Transmission Date: 20120825
  Serious: No
  Sender: FDA-Public Use
  Company Number: None

PATIENT
  Age: 86 Year
  Sex: Male

DRUGS (1)
  1. DABIGATRN [Suspect]
     Indication: ATRIAL FIBRILLATION
     Dates: start: 20110401, end: 20120212

REACTIONS (2)
  - HAEMATURIA [None]
  - HAEMOPTYSIS [None]
